FAERS Safety Report 4626654-2 (Version None)
Quarter: 2005Q1

REPORT INFORMATION
  Report Type: 
  Country: None (occurrence: None)
  Receive Date: 20050330
  Receipt Date: 20050316
  Transmission Date: 20050727
  Serious: Yes (Other)
  Sender: FDA-Public Use
  Company Number: 2005US000351

PATIENT
  Age: 40 Year
  Sex: Female

DRUGS (3)
  1. PROTOPIC [Suspect]
     Indication: VITILIGO
     Dosage: TOPICAL
     Route: 061
  2. PSORALENS FOR TOPICAL USE [Concomitant]
  3. NARROW BAND UVB [Concomitant]

REACTIONS (1)
  - OVARIAN CANCER [None]
